FAERS Safety Report 7463122-7 (Version None)
Quarter: 2011Q2

REPORT INFORMATION
  Report Type: 
  Country: None (occurrence: None)
  Receive Date: 20110506
  Receipt Date: 20110427
  Transmission Date: 20111010
  Serious: Yes (Other)
  Sender: FDA-Public Use
  Company Number: US-ROCHE-743315

PATIENT
  Sex: Female
  Weight: 59 kg

DRUGS (3)
  1. ACCUTANE [Suspect]
     Indication: ACNE
     Route: 065
     Dates: start: 19980101
  2. ACCUTANE [Suspect]
     Route: 065
     Dates: end: 19990101
  3. ACCUTANE [Suspect]
     Route: 065
     Dates: start: 19980601, end: 19980801

REACTIONS (5)
  - INTESTINAL OBSTRUCTION [None]
  - DEPRESSION [None]
  - COLITIS ULCERATIVE [None]
  - GASTROINTESTINAL INJURY [None]
  - ANAEMIA [None]
